FAERS Safety Report 7139169-7 (Version None)
Quarter: 2010Q4

REPORT INFORMATION
  Report Type: 
  Country: None (occurrence: None)
  Receive Date: 20101202
  Receipt Date: 20101202
  Transmission Date: 20110411
  Serious: Yes (Hospitalization)
  Sender: FDA-Public Use
  Company Number: None

PATIENT
  Sex: Male
  Weight: 21.2 kg

DRUGS (4)
  1. METHOTREXATE [Suspect]
     Dosage: 480 MG
     Dates: end: 20090921
  2. VINCRISTINE SULFATE [Suspect]
     Dosage: 5.2 MG
     Dates: end: 20090921
  3. PEG-L-ASPARAGINASE (PEASPARGASE, ONCOSPAR) [Suspect]
     Dosage: 4381 IU
     Dates: end: 20090909
  4. CYTARABINE [Suspect]
     Dosage: 140 MG
     Dates: end: 20090921

REACTIONS (1)
  - BLOOD BILIRUBIN INCREASED [None]
